FAERS Safety Report 7092906-2 (Version None)
Quarter: 2010Q4

REPORT INFORMATION
  Report Type: 
  Country: None (occurrence: None)
  Receive Date: 20101109
  Receipt Date: 20101109
  Transmission Date: 20110411
  Serious: Yes (Other)
  Sender: FDA-Public Use
  Company Number: None

PATIENT
  Sex: Male
  Weight: 108.6 kg

DRUGS (1)
  1. DILANTIN [Suspect]
     Indication: EPILEPSY

REACTIONS (3)
  - CONVULSION [None]
  - DRUG HYPERSENSITIVITY [None]
  - PRODUCT SUBSTITUTION ISSUE [None]
